FAERS Safety Report 9820452 (Version 2)
Quarter: 2013Q4

REPORT INFORMATION
  Report Type: Spontaneous
  Country: US (occurrence: None)
  Receive Date: 20131028
  Receipt Date: 20131028
  Transmission Date: 20140711
  Serious: Yes (Other)
  Sender: FDA-Public Use
  Company Number: 2013US001658

PATIENT
  Age: 74 Year
  Sex: Female
  Weight: 52 kg

DRUGS (6)
  1. ICLUSIG [Suspect]
     Indication: CHRONIC MYELOID LEUKAEMIA
     Route: 048
     Dates: start: 20130506, end: 20130508
  2. DIGESTIVE ENZYMES (BETAINE HYDROCHLORIDE, BROMELAINS, CELLULASE, PANCREATIN, PAPAIN) [Concomitant]
  3. AVAPRO (IRBESARTAN) [Concomitant]
  4. PROBIOTIC (BIFIDOBACTERIUM LACTIS) [Concomitant]
  5. ATENOLOL (ATENOLOL) [Concomitant]
  6. PREMARIN (ESTROGENS CONJUGATED) [Concomitant]

REACTIONS (7)
  - Hypertension [None]
  - Neck pain [None]
  - Myalgia [None]
  - Haematuria [None]
  - Arthralgia [None]
  - Asthenia [None]
  - Fatigue [None]
